FAERS Safety Report 25127831 (Version 1)
Quarter: 2025Q1

REPORT INFORMATION
  Report Type: Spontaneous
  Country: US (occurrence: US)
  Receive Date: 20250327
  Receipt Date: 20250327
  Transmission Date: 20250409
  Serious: Yes (Other)
  Sender: COOPERSURGICAL
  Company Number: US-COOPERSURGICAL, INC.-2025CPS002195

PATIENT
  Age: 32 Year
  Sex: Female
  Weight: 56.689 kg

DRUGS (1)
  1. PARAGARD T 380A [Suspect]
     Active Substance: COPPER
     Route: 015
     Dates: start: 20091001

REACTIONS (11)
  - Cervix carcinoma [Unknown]
  - Device allergy [Unknown]
  - Device breakage [Recovered/Resolved]
  - Foreign body in reproductive tract [Recovered/Resolved]
  - Complication of device removal [Recovered/Resolved]
  - Vaginal discharge [Unknown]
  - Emotional disorder [Unknown]
  - Vulvovaginal discomfort [Unknown]
  - Heavy menstrual bleeding [Unknown]
  - Hypomenorrhoea [Unknown]
  - Dysmenorrhoea [Unknown]

NARRATIVE: CASE EVENT DATE: 20160316
